FAERS Safety Report 12664853 (Version 2)
Quarter: 2016Q3

REPORT INFORMATION
  Report Type: Spontaneous
  Country: US (occurrence: US)
  Receive Date: 20160818
  Receipt Date: 20160907
  Transmission Date: 20161109
  Serious: Yes (Other)
  Sender: FDA-Public Use
  Company Number: CARX-ADE16

PATIENT
  Age: 79 Year
  Sex: Female

DRUGS (1)
  1. BEVACIZUMAB 1.25MG/0.05ML PFS (SHORT NDL) SOL [Suspect]
     Active Substance: BEVACIZUMAB
     Indication: NEOVASCULAR AGE-RELATED MACULAR DEGENERATION
     Route: 047
     Dates: start: 20160706

REACTIONS (1)
  - Endophthalmitis [Recovering/Resolving]

NARRATIVE: CASE EVENT DATE: 20160709
